FAERS Safety Report 14851559 (Version 2)
Quarter: 2018Q2

REPORT INFORMATION
  Report Type: Spontaneous
  Country: IT (occurrence: IT)
  Receive Date: 20180507
  Receipt Date: 20180513
  Transmission Date: 20180711
  Serious: Yes (Death)
  Sender: FDA-Public Use
  Company Number: IT-BEH-2018090381

PATIENT
  Age: 44 Year
  Sex: Male

DRUGS (1)
  1. HUMAN IMMUNOGLOBULIN IV (INN) [Suspect]
     Active Substance: HUMAN IMMUNOGLOBULIN G
     Indication: MALIGNANT ATROPHIC PAPULOSIS
     Route: 042

REACTIONS (1)
  - Drug ineffective for unapproved indication [Fatal]
